FAERS Safety Report 15852145 (Version 1)
Quarter: 2019Q1

REPORT INFORMATION
  Report Type: Other
  Country: IT (occurrence: IT)
  Receive Date: 20190122
  Receipt Date: 20190122
  Transmission Date: 20190417
  Serious: Yes (Hospitalization, Other)
  Sender: FDA-Public Use
  Company Number: IT-ORCHID HEALTHCARE-2061544

PATIENT
  Age: 36 Year
  Sex: Male

DRUGS (2)
  1. ARIPIPRAZOLE, TABLET [Suspect]
     Active Substance: ARIPIPRAZOLE
     Indication: SCHIZOPHRENIA
     Route: 065
  2. HALOPERIDOL DECANOATE. [Suspect]
     Active Substance: HALOPERIDOL DECANOATE
     Route: 030

REACTIONS (2)
  - Central nervous system lesion [Recovered/Resolved]
  - Neuroleptic malignant syndrome [Recovered/Resolved]
